FAERS Safety Report 18219149 (Version 2)
Quarter: 2020Q3

REPORT INFORMATION
  Report Type: Spontaneous
  Country: ES (occurrence: ES)
  Receive Date: 20200901
  Receipt Date: 20200930
  Transmission Date: 20201103
  Serious: Yes (Other)
  Sender: FDA-Public Use
  Company Number: NVSC2020ES240418

PATIENT
  Age: 43 Year
  Sex: Female

DRUGS (5)
  1. METHOTREXATE. [Suspect]
     Active Substance: METHOTREXATE
     Indication: OPTIC NEURITIS
     Dosage: 15 MG QW (SUBCUTNEOUS OR ORAL PER WEEK)
     Route: 065
  2. PREDNISONE. [Suspect]
     Active Substance: PREDNISONE
     Dosage: BEFORE BIOLOGIC INITIATION: MEAN MAX DOSE OF 53.7 +/?17.7 MG/DAY
     Route: 048
  3. INFLIXIMAB [Suspect]
     Active Substance: INFLIXIMAB
     Indication: OPTIC NEURITIS
     Dosage: 5 MG/KG AT 0, 2, 6 AND THEN EVERY 8 WEEKS
     Route: 042
  4. CYCLOPHOSPHAMIDE. [Suspect]
     Active Substance: CYCLOPHOSPHAMIDE
     Indication: OPTIC NEURITIS
     Dosage: 9 MG/KG, QW
     Route: 042
  5. PREDNISONE. [Suspect]
     Active Substance: PREDNISONE
     Indication: OPTIC NEURITIS
     Dosage: 60 MG, QD
     Route: 048

REACTIONS (6)
  - Product use in unapproved indication [Unknown]
  - Drug effective for unapproved indication [Unknown]
  - Optic neuritis [Unknown]
  - Drug specific antibody [Unknown]
  - Tachyphylaxis [Unknown]
  - Off label use [Unknown]
